FAERS Safety Report 5150162-6 (Version None)
Quarter: 2006Q4

REPORT INFORMATION
  Report Type: 
  Country: None (occurrence: None)
  Receive Date: 20061114
  Receipt Date: 20061106
  Transmission Date: 20070319
  Serious: Yes (Hospitalization)
  Sender: FDA-Public Use
  Company Number: AU-JNJFOC-20061101458

PATIENT
  Sex: Female

DRUGS (8)
  1. DAKTARIN [Suspect]
     Indication: DRUG USE FOR UNKNOWN INDICATION
     Route: 048
  2. SINGULAIR [Concomitant]
     Route: 065
  3. FUNGILIN [Concomitant]
     Route: 048
  4. PRAVACHOL [Concomitant]
     Route: 048
  5. MEGAFOL [Concomitant]
     Route: 048
  6. BACTROBAN [Concomitant]
     Route: 045
  7. SOLONE [Concomitant]
     Route: 048
  8. NUELIN [Concomitant]
     Route: 048

REACTIONS (1)
  - DYSPNOEA [None]
